FAERS Safety Report 10290069 (Version 3)
Quarter: 2016Q1

REPORT INFORMATION
  Report Type: Spontaneous
  Country: US (occurrence: US)
  Receive Date: 20140710
  Receipt Date: 20160317
  Transmission Date: 20160525
  Serious: No
  Sender: FDA-Public Use
  Company Number: US-PFIZER INC-2014188459

PATIENT
  Age: 71 Year
  Sex: Female
  Weight: 101 kg

DRUGS (30)
  1. DIGOXIN. [Concomitant]
     Active Substance: DIGOXIN
     Indication: CARDIAC DISORDER
     Dosage: 0.25 MG, 1X/DAY
  2. ACETAMINOPHEN ER [Concomitant]
     Active Substance: ACETAMINOPHEN
     Dosage: 650 MG, 4X/DAY
  3. ASPIRIN. [Concomitant]
     Active Substance: ASPIRIN
     Dosage: 81 MG, 1X/DAY
  4. LECITHIN [Concomitant]
     Active Substance: LECITHIN
     Dosage: UNK
  5. MULTIVITAMIN /00097801/ [Concomitant]
     Active Substance: VITAMINS
     Dosage: UNK, 1X/DAY
  6. GLYBURIDE. [Concomitant]
     Active Substance: GLYBURIDE
     Indication: DIABETES MELLITUS
     Dosage: 2.5 MG, 1X/DAY
  7. CLEMEQ [Concomitant]
     Dosage: 20 MEQ, 2X/DAY
     Dates: start: 2015
  8. MIRALAX [Concomitant]
     Active Substance: POLYETHYLENE GLYCOL 3350
     Dosage: UNK, 1X/DAY  (2 SPOONFUL @ BED)
     Dates: start: 2014
  9. AMITRIPTYLINE [Concomitant]
     Active Substance: AMITRIPTYLINE
     Indication: NEUROPATHY PERIPHERAL
     Dosage: 50 MG, 3X/DAY
     Route: 048
  10. PREMARIN [Concomitant]
     Active Substance: ESTROGENS, CONJUGATED
     Dosage: 0.625 MG/GM
     Dates: start: 201601
  11. WARFARIN SODIUM. [Concomitant]
     Active Substance: WARFARIN SODIUM
     Dosage: 7.5 MG, 1X/DAY
  12. WARFARIN [Concomitant]
     Active Substance: WARFARIN
     Indication: ANTICOAGULANT THERAPY
     Dosage: 7.5 MG, 1X/DAY
  13. ESTRACE [Concomitant]
     Active Substance: ESTRADIOL
     Dosage: UNK (0.1 MG/GM)
     Dates: start: 2015
  14. HM VITAMIN 050 COMPLEX [Concomitant]
     Dosage: UNK, 1X/DAY
  15. MIRALAX [Concomitant]
     Active Substance: POLYETHYLENE GLYCOL 3350
     Dosage: UNK, AS NEEDED
  16. LYRICA [Suspect]
     Active Substance: PREGABALIN
     Indication: DIABETIC NEUROPATHY
     Dosage: 150 MG, 1X/DAY
     Route: 048
     Dates: start: 2006
  17. DIGOXIN. [Concomitant]
     Active Substance: DIGOXIN
     Dosage: 125 UG, 1X/DAY
     Dates: start: 2008
  18. METFORMIN [Concomitant]
     Active Substance: METFORMIN HYDROCHLORIDE
     Indication: DIABETES MELLITUS
     Dosage: 1000 MG, 2X/DAY
     Route: 048
  19. FLUCONAZOLE. [Concomitant]
     Active Substance: FLUCONAZOLE
     Dosage: 150 MG, UNK
     Dates: start: 2009
  20. KLOR-CON M20 [Concomitant]
     Active Substance: POTASSIUM CHLORIDE
     Dosage: 20 MEQ, UNK
  21. ATORVASTATIN CALCIUM. [Concomitant]
     Active Substance: ATORVASTATIN CALCIUM
     Dosage: 80 MG, 1X/DAY (QHS)
     Dates: start: 2015
  22. METFORMIN HCL [Concomitant]
     Active Substance: METFORMIN HYDROCHLORIDE
     Dosage: 1000 MG, 2X/DAY
  23. ASPIRIN. [Concomitant]
     Active Substance: ASPIRIN
     Dosage: 85 MG, UNK
     Dates: start: 2015
  24. QG STOOL SOFTENER [Concomitant]
     Dosage: 100 MG, AS NEEDED
  25. FUROSEMIDE. [Concomitant]
     Active Substance: FUROSEMIDE
     Indication: DIURETIC THERAPY
     Dosage: 80 MG, 2X/DAY
  26. ATORVASTATIN [Concomitant]
     Active Substance: ATORVASTATIN
     Indication: BLOOD CHOLESTEROL INCREASED
     Dosage: 40 MG, 1X/DAY
     Dates: start: 2015
  27. AMITRIPTYLINE HCL [Concomitant]
     Active Substance: AMITRIPTYLINE
     Dosage: 50 MG, UNK
  28. CHELATED ZINC [Concomitant]
     Dosage: 50 MG, UNK
  29. GARLIC. [Suspect]
     Active Substance: GARLIC
     Indication: PROPHYLAXIS
     Dosage: 400 MG, 1X/DAY
  30. METOLAZONE. [Concomitant]
     Active Substance: METOLAZONE
     Dosage: 2.5 MG, 1X/DAY
     Dates: start: 2012

REACTIONS (1)
  - Tinnitus [Not Recovered/Not Resolved]
